FAERS Safety Report 9761379 (Version 1)
Quarter: 2013Q3

REPORT INFORMATION
  Report Type: Spontaneous
  Country: US (occurrence: None)
  Receive Date: 20130717
  Receipt Date: 20130717
  Transmission Date: 20140515
  Serious: Yes (Hospitalization)
  Sender: FDA-Public Use
  Company Number: UTC-035193

PATIENT
  Age: 65 Year
  Sex: Male

DRUGS (10)
  1. REMODULIN (2.5 MILLIGRAM/MILLILITERS, INJECTION FOR INFUSION) (TREPROSTINIL SODIUM) [Suspect]
     Indication: PULMONARY ARTERIAL HYPERTENSION
     Dosage: 3.6 UG/KG (0.0025 UG/KG, 1 IN 1MIN), SUBCUTANEOUS
     Route: 058
     Dates: start: 20130620, end: 2013
  2. TRACLEER (BOSENTAN) [Concomitant]
  3. BACTRIM (BACTRIM) (SULFAMETHOXAZOLE, TRIMETHOPRIM) [Concomitant]
  4. ALLOPURINOL [Concomitant]
  5. DILTIAZEM [Concomitant]
  6. XANAX (ALPRAZOLAM) [Concomitant]
  7. PRILOSEC [Concomitant]
  8. ENALAPRIL [Concomitant]
  9. FUROSEMIDE [Concomitant]
  10. REVATIO (SILDENAFIL CITRATE) [Concomitant]

REACTIONS (1)
  - Urticaria [None]
